FAERS Safety Report 18291649 (Version 1)
Quarter: 2020Q3

REPORT INFORMATION
  Report Type: Spontaneous
  Country: US (occurrence: US)
  Receive Date: 20200921
  Receipt Date: 20200921
  Transmission Date: 20201103
  Serious: Yes (Other)
  Sender: FDA-Public Use
  Company Number: US-PFIZER INC-2020359385

PATIENT
  Sex: Male

DRUGS (2)
  1. GEODON [Suspect]
     Active Substance: ZIPRASIDONE HYDROCHLORIDE\ZIPRASIDONE MESYLATE
     Indication: SLEEP DISORDER
     Dosage: UNK
     Dates: start: 2020, end: 2020
  2. SYNTHROID [Concomitant]
     Active Substance: LEVOTHYROXINE SODIUM

REACTIONS (7)
  - Tongue biting [Unknown]
  - Trismus [Unknown]
  - Insomnia [Unknown]
  - Seizure [Unknown]
  - Product use in unapproved indication [Unknown]
  - Urinary incontinence [Unknown]
  - Off label use [Unknown]
